FAERS Safety Report 6964061-8 (Version None)
Quarter: 2010Q3

REPORT INFORMATION
  Report Type: 
  Country: None (occurrence: None)
  Receive Date: 20100902
  Receipt Date: 20100902
  Transmission Date: 20110219
  Serious: No
  Sender: FDA-Public Use
  Company Number: None

PATIENT
  Age: 58 Year
  Sex: Female
  Weight: 62.5964 kg

DRUGS (1)
  1. ARMOUR THYROID 15 MGS. [Suspect]
     Indication: HYPOTHYROIDIC GOITRE
     Dosage: 15 MGS. 1 X DAY MOUTH
     Dates: start: 20100803

REACTIONS (4)
  - ALOPECIA [None]
  - INSOMNIA [None]
  - PALPITATIONS [None]
  - PSYCHOMOTOR HYPERACTIVITY [None]
